FAERS Safety Report 6756078-3 (Version None)
Quarter: 2010Q2

REPORT INFORMATION
  Report Type: 
  Country: None (occurrence: None)
  Receive Date: 20100604
  Receipt Date: 20100524
  Transmission Date: 20101027
  Serious: Yes (Other)
  Sender: FDA-Public Use
  Company Number: KR-PFIZER INC-2010064460

PATIENT
  Sex: Male

DRUGS (1)
  1. LYRICA [Suspect]
     Dosage: 150 MG, 2X/DAY
     Route: 048

REACTIONS (5)
  - AGITATION [None]
  - ANXIETY [None]
  - INTERVERTEBRAL DISC OPERATION [None]
  - NAUSEA [None]
  - POOR QUALITY SLEEP [None]
